FAERS Safety Report 8268485-0 (Version None)
Quarter: 2012Q2

REPORT INFORMATION
  Report Type: 
  Country: None (occurrence: None)
  Receive Date: 20120409
  Receipt Date: 20120330
  Transmission Date: 20120825
  Serious: Yes (Other)
  Sender: FDA-Public Use
  Company Number: PHFR2012GB001797

PATIENT
  Sex: Female

DRUGS (3)
  1. CLOZARIL [Suspect]
     Indication: SCHIZOPHRENIA
     Dosage: UNK UKN, UNK
     Route: 048
     Dates: start: 20110728, end: 20120329
  2. SERTRALINE HYDROCHLORIDE [Concomitant]
     Dosage: 100 MG, QD
  3. SIMVASTATIN [Concomitant]
     Dosage: 40 MG, UNK

REACTIONS (3)
  - URINARY TRACT INFECTION [None]
  - LEUKOPENIA [None]
  - DYSURIA [None]
